FAERS Safety Report 5712536-1 (Version None)
Quarter: 2008Q2

REPORT INFORMATION
  Report Type: 
  Country: None (occurrence: None)
  Receive Date: 20080418
  Receipt Date: 20080410
  Transmission Date: 20081010
  Serious: Yes (Hospitalization)
  Sender: FDA-Public Use
  Company Number: CHNY2008JP01605

PATIENT
  Age: 40 Year
  Sex: Male

DRUGS (2)
  1. BUFFERIN (NCH)(ACETYLSALICYLIC ACID) [Suspect]
     Indication: POLYCYTHAEMIA
     Dosage: 81 MG, QD, ORAL
     Route: 048
  2. KELNAC PLAUNOTOL) [Concomitant]

REACTIONS (8)
  - BLOOD LACTATE DEHYDROGENASE INCREASED [None]
  - BLOOD POTASSIUM INCREASED [None]
  - COMPARTMENT SYNDROME [None]
  - ERYTHEMA [None]
  - MUSCLE HAEMORRHAGE [None]
  - MUSCLE NECROSIS [None]
  - MUSCLE SWELLING [None]
  - PAIN IN EXTREMITY [None]
